FAERS Safety Report 14244135 (Version 1)
Quarter: 2017Q4

REPORT INFORMATION
  Report Type: Report from Study
  Country: IN (occurrence: IN)
  Receive Date: 20171201
  Receipt Date: 20171201
  Transmission Date: 20180321
  Serious: Yes (Death)
  Sender: FDA-Public Use
  Company Number: PHHY2017IN177458

PATIENT
  Age: 64 Year
  Sex: Male
  Weight: 62 kg

DRUGS (1)
  1. VYMADA [Suspect]
     Active Substance: SACUBITRIL\VALSARTAN
     Indication: CARDIAC FAILURE
     Dosage: 50 MG, QD
     Route: 048
     Dates: start: 20170920

REACTIONS (6)
  - Cardiac disorder [Unknown]
  - Sudden death [Fatal]
  - Liver disorder [Unknown]
  - Inappropriate schedule of drug administration [Unknown]
  - Renal disorder [Unknown]
  - Underdose [Unknown]

NARRATIVE: CASE EVENT DATE: 20170920
